FAERS Safety Report 9353590 (Version 4)
Quarter: 2014Q1

REPORT INFORMATION
  Report Type: Spontaneous
  Country: US (occurrence: US)
  Receive Date: 20130618
  Receipt Date: 20140205
  Transmission Date: 20141002
  Serious: Yes (Hospitalization)
  Sender: FDA-Public Use
  Company Number: US-BAYER-2013-072722

PATIENT
  Age: 35 Year
  Sex: Female
  Weight: 65.76 kg

DRUGS (3)
  1. MIRENA [Suspect]
     Indication: CONTRACEPTION
     Dosage: 20 MCG/24HR, BIW
     Route: 015
     Dates: start: 20091112, end: 20110209
  2. LEENA-28 [Concomitant]
  3. IBUPROFEN [Concomitant]

REACTIONS (7)
  - Ectopic pregnancy with contraceptive device [None]
  - Haemorrhage in pregnancy [None]
  - Depression [None]
  - Anxiety [None]
  - Fear of disease [None]
  - Drug ineffective [None]
  - Fear of death [None]
